FAERS Safety Report 25506738 (Version 2)
Quarter: 2025Q3

REPORT INFORMATION
  Report Type: Spontaneous
  Country: CL (occurrence: CL)
  Receive Date: 20250702
  Receipt Date: 20250714
  Transmission Date: 20251021
  Serious: Yes (Other)
  Sender: Hugel Aesthetics
  Company Number: CL-Hugel Aesthetics-2179820

PATIENT
  Age: 45 Year
  Sex: Female

DRUGS (1)
  1. BOTULINUM TOXIN TYPE A [Suspect]
     Active Substance: BOTULINUM TOXIN TYPE A
     Indication: Skin wrinkling
     Dates: end: 20250520

REACTIONS (4)
  - Eyelid oedema [Recovering/Resolving]
  - Product quality issue [Unknown]
  - Drug ineffective [Not Recovered/Not Resolved]
  - Blepharitis [Recovering/Resolving]

NARRATIVE: CASE EVENT DATE: 20250501
